FAERS Safety Report 9589371 (Version 1)
Quarter: 2013Q4

REPORT INFORMATION
  Report Type: Spontaneous
  Country: US (occurrence: US)
  Receive Date: 20131003
  Receipt Date: 20131003
  Transmission Date: 20140711
  Serious: No
  Sender: FDA-Public Use
  Company Number: US-AMGEN-USASP2012069878

PATIENT
  Age: 34 Year
  Sex: Female
  Weight: 66 kg

DRUGS (22)
  1. ENBREL [Suspect]
     Indication: RHEUMATOID ARTHRITIS
     Dosage: 50 MG, QWK
     Route: 058
  2. METHOTREXATE [Concomitant]
     Dosage: 25 UNK, UNK
     Route: 058
  3. PREDNISONE [Concomitant]
     Dosage: 1 MG, UNK
     Route: 048
  4. NORCO [Concomitant]
     Dosage: 5-25 MG
     Route: 048
  5. IBUPROFEN [Concomitant]
     Dosage: 200 MG, UNK
     Route: 048
  6. AMITRIPTYLIN [Concomitant]
     Dosage: 10 MG, UNK
  7. SYNTHROID [Concomitant]
     Dosage: 100 MUG, UNK
     Route: 048
  8. FOLIC ACID [Concomitant]
     Dosage: UNK
     Route: 048
  9. NUCYNTA [Concomitant]
     Dosage: 50 MG, UNK
     Route: 048
  10. LEUCOVORIN CA [Concomitant]
     Dosage: 25 MG, UNK
     Route: 048
  11. B COMPLEX                          /00212701/ [Concomitant]
     Dosage: UNK
     Route: 048
  12. CALCIUM + VIT D [Concomitant]
     Dosage: 500 MG, UNK
     Route: 048
  13. DHA [Concomitant]
     Dosage: 200 MG, UNK
     Route: 048
  14. DOCOSAHEXAENOIC ACID                          /00107901/ [Concomitant]
     Dosage: 1000 UNIT, UNK
     Route: 048
  15. STOOL SOFTENER [Concomitant]
     Dosage: 100 MG, UNK
     Route: 048
  16. ZYRTEC [Concomitant]
     Dosage: 10 MG, UNK
     Route: 048
  17. ATELVIA [Concomitant]
     Dosage: UNK
     Route: 048
  18. PROTONIX [Concomitant]
     Dosage: 20 MG, UNK
     Route: 048
  19. CARAFATE [Concomitant]
     Dosage: 1 G, UNK
     Route: 048
  20. MORPHINE [Concomitant]
     Dosage: 100 MG, UNK
     Route: 048
  21. SPRINTEC [Concomitant]
     Dosage: 28 TAB 28 DAY
     Route: 048
  22. OMEGA 3                            /01334101/ [Concomitant]
     Dosage: 1000 MG, UNK
     Route: 048

REACTIONS (2)
  - Rhinorrhoea [Unknown]
  - Nasopharyngitis [Unknown]
